FAERS Safety Report 21732100 (Version 2)
Quarter: 2022Q4

REPORT INFORMATION
  Report Type: Spontaneous
  Country: GB (occurrence: GB)
  Receive Date: 20221215
  Receipt Date: 20221220
  Transmission Date: 20230113
  Serious: Yes (Hospitalization, Other)
  Sender: FDA-Public Use
  Company Number: None

PATIENT
  Age: 72 Year
  Sex: Female

DRUGS (2)
  1. PREDNISOLONE [Suspect]
     Active Substance: PREDNISOLONE
     Indication: Polymyalgia rheumatica
     Dosage: UNK; (COMPLETED A THREE-MONTH COURSE)
     Route: 065
  2. PREDNISOLONE [Suspect]
     Active Substance: PREDNISOLONE
     Dosage: 3 MILLIGRAM (DOSE REDUCED)
     Route: 065

REACTIONS (2)
  - Inappropriate antidiuretic hormone secretion [Unknown]
  - Adrenal insufficiency [Recovered/Resolved]
